FAERS Safety Report 19063119 (Version 1)
Quarter: 2021Q1

REPORT INFORMATION
  Report Type: Spontaneous
  Country: US (occurrence: US)
  Receive Date: 20210326
  Receipt Date: 20210326
  Transmission Date: 20210420
  Serious: Yes (Other)
  Sender: FDA-Public Use
  Company Number: US-GLAXOSMITHKLINE-US2020154528

PATIENT
  Sex: Male

DRUGS (6)
  1. ZANTAC [Suspect]
     Active Substance: RANITIDINE HYDROCHLORIDE
     Route: 065
  2. RANITIDINE HCI [Suspect]
     Active Substance: RANITIDINE HYDROCHLORIDE
     Route: 065
  3. RANITIDINE. [Suspect]
     Active Substance: RANITIDINE
     Indication: DIABETES MELLITUS
     Dosage: 150 MG, QD
     Route: 065
     Dates: start: 199703, end: 201411
  4. ZANTAC [Suspect]
     Active Substance: RANITIDINE HYDROCHLORIDE
     Indication: DIABETES MELLITUS
     Dosage: 150 MG, QD
     Route: 065
     Dates: start: 199603, end: 201411
  5. ZANTAC [Suspect]
     Active Substance: RANITIDINE HYDROCHLORIDE
     Indication: DIABETES MELLITUS
     Dosage: 150 MG, QD
     Route: 065
     Dates: start: 199603, end: 201411
  6. RANITIDINE. [Suspect]
     Active Substance: RANITIDINE
     Indication: DIABETES MELLITUS
     Dosage: 150 MG, QD
     Route: 065
     Dates: start: 199703, end: 201411

REACTIONS (1)
  - Prostate cancer [Unknown]
